FAERS Safety Report 6309195-6 (Version None)
Quarter: 2009Q3

REPORT INFORMATION
  Report Type: 
  Country: None (occurrence: None)
  Receive Date: 20090812
  Receipt Date: 20090803
  Transmission Date: 20100115
  Serious: Yes (Other)
  Sender: FDA-Public Use
  Company Number: ESP09000091

PATIENT
  Age: 82 Year
  Sex: Female

DRUGS (5)
  1. RISEDRONATE SODIUM [Suspect]
     Indication: BACK PAIN
     Dosage: 35 MG, 1/WEEK, ORAL
     Route: 048
     Dates: start: 20080401
  2. ARTILOG (CELECOXIB) CAPSULE, 200MG [Suspect]
     Indication: BACK PAIN
     Dosage: 200MG, 1/DAY, ORAL
     Route: 048
     Dates: start: 20080401
  3. CARDYL (ATORVASTATIN CALCIUM) TABLET, 40 MG [Suspect]
     Dosage: 40 MG 1/DAY, ORAL
     Route: 048
     Dates: start: 20080201
  4. COZAAR PLUS (HYDROCHLOROTHIAZIDE, LOSARTAN POTASSIUM) TABLET, 1DF [Suspect]
     Indication: HYPERTENSION
     Dosage: 1 DF, 1/DAY, ORAL
     Route: 048
     Dates: start: 20080101
  5. PANTECTA (PANTOPRAZOLE SODIUM) GASTRO-RESISTANT TABLET, 40MG [Suspect]
     Indication: DYSPEPSIA
     Dosage: 40 MG, 1/DAY, ORAL
     Route: 048
     Dates: start: 20080401

REACTIONS (2)
  - CEREBRAL INFARCTION [None]
  - TRANSIENT ISCHAEMIC ATTACK [None]
